FAERS Safety Report 16697806 (Version 2)
Quarter: 2020Q1

REPORT INFORMATION
  Report Type: Report from Study
  Country: US (occurrence: US)
  Receive Date: 20190813
  Receipt Date: 20200116
  Transmission Date: 20200409
  Serious: Yes (Hospitalization)
  Sender: FDA-Public Use
  Company Number: US-EISAI MEDICAL RESEARCH-EC-2019-059264

PATIENT
  Age: 63 Year
  Sex: Male

DRUGS (2)
  1. LENVIMA [Suspect]
     Active Substance: LENVATINIB
     Indication: HEPATOCELLULAR CARCINOMA
     Route: 048
     Dates: start: 201907, end: 201907
  2. LENVIMA [Suspect]
     Active Substance: LENVATINIB
     Dosage: ALTERNATING 4 MG AND 8 MG
     Route: 048
     Dates: start: 201907

REACTIONS (5)
  - Internal haemorrhage [Recovered/Resolved]
  - Insomnia [Unknown]
  - Abdominal pain upper [Unknown]
  - Gastritis [Recovered/Resolved]
  - Gallbladder disorder [Unknown]

NARRATIVE: CASE EVENT DATE: 201907
